FAERS Safety Report 4469501-4 (Version None)
Quarter: 2004Q4

REPORT INFORMATION
  Report Type: 
  Country: None (occurrence: None)
  Receive Date: 20041008
  Receipt Date: 20040929
  Transmission Date: 20050328
  Serious: Yes (Life-Threatening, Hospitalization)
  Sender: FDA-Public Use
  Company Number: FR-JNJFOC-20040905809

PATIENT
  Age: 59 Year
  Sex: Female

DRUGS (6)
  1. HALDOL [Suspect]
     Route: 049
  2. NOZINAN [Suspect]
     Route: 049
  3. NOZINAN [Suspect]
     Route: 049
  4. CLOPIXOL [Suspect]
     Route: 030
  5. ARTANE [Concomitant]
  6. GARDENAL [Concomitant]

REACTIONS (3)
  - MUSCLE NECROSIS [None]
  - NEUROLEPTIC MALIGNANT SYNDROME [None]
  - RASH ERYTHEMATOUS [None]
